FAERS Safety Report 23115327 (Version 1)
Quarter: 2023Q4

REPORT INFORMATION
  Report Type: Spontaneous
  Country: None (occurrence: US)
  Receive Date: 20231027
  Receipt Date: 20231027
  Transmission Date: 20240110
  Serious: Yes (Other)
  Sender: FDA-Public Use
  Company Number: US-Cardiovascular Medical Group of Southern California-2147503

PATIENT
  Age: 58 Year
  Sex: Male
  Weight: 83.182 kg

DRUGS (1)
  1. LEQVIO [Suspect]
     Active Substance: INCLISIRAN SODIUM
     Indication: Coronary artery disease
     Route: 058
     Dates: start: 20230627

REACTIONS (3)
  - Adverse drug reaction [Recovering/Resolving]
  - Erythema [None]
  - Arthralgia [None]
